FAERS Safety Report 24787994 (Version 1)
Quarter: 2024Q4

REPORT INFORMATION
  Report Type: Spontaneous
  Country: DE (occurrence: DE)
  Receive Date: 20241230
  Receipt Date: 20241230
  Transmission Date: 20250115
  Serious: Yes (Other)
  Sender: NORDIC PHARMA
  Company Number: DE-AstraZeneca-2024A193297

PATIENT
  Sex: Female
  Weight: 70 kg

DRUGS (6)
  1. METHOTREXATE [Suspect]
     Active Substance: METHOTREXATE
     Indication: Product used for unknown indication
  2. BELIMUMAB [Concomitant]
     Active Substance: BELIMUMAB
  3. AZATHIOPRINE [Concomitant]
     Active Substance: AZATHIOPRINE
  4. SAPHNELO [Concomitant]
     Active Substance: ANIFROLUMAB-FNIA
     Indication: Product used for unknown indication
     Dosage: UNK
     Route: 042
     Dates: start: 202209
  5. Mepacrin [Concomitant]
  6. ANIFROLUMAB [Concomitant]
     Active Substance: ANIFROLUMAB

REACTIONS (1)
  - Blindness unilateral [Recovered/Resolved]
